FAERS Safety Report 18920165 (Version 2)
Quarter: 2021Q1

REPORT INFORMATION
  Report Type: Report from Study
  Country: KR (occurrence: KR)
  Receive Date: 20210222
  Receipt Date: 20210228
  Transmission Date: 20210420
  Serious: Yes (Other)
  Sender: FDA-Public Use
  Company Number: KR-JNJFOC-20210221615

PATIENT

DRUGS (1)
  1. STELARA [Suspect]
     Active Substance: USTEKINUMAB
     Indication: PSORIASIS
     Route: 058

REACTIONS (6)
  - Drug ineffective [Unknown]
  - Pruritus [Unknown]
  - Adverse event [Unknown]
  - Nausea [Unknown]
  - Liver function test abnormal [Unknown]
  - Urticaria [Unknown]
